FAERS Safety Report 5480409-8 (Version None)
Quarter: 2007Q4

REPORT INFORMATION
  Report Type: 
  Country: None (occurrence: None)
  Receive Date: 20071004
  Receipt Date: 20071004
  Transmission Date: 20080405
  Serious: Yes (Other)
  Sender: FDA-Public Use
  Company Number: None

PATIENT
  Age: 38 Year
  Sex: Female
  Weight: 62.5964 kg

DRUGS (1)
  1. CYMBALTA [Suspect]
     Indication: NEUROPATHY
     Dosage: 20 MG ONCE DAILY PO
     Route: 048
     Dates: start: 20061201, end: 20061227

REACTIONS (12)
  - ABDOMINAL DISTENSION [None]
  - CONSTIPATION [None]
  - DEPRESSION [None]
  - DYSPNOEA [None]
  - DYSURIA [None]
  - FLATULENCE [None]
  - FLUID RETENTION [None]
  - GENERALISED OEDEMA [None]
  - LETHARGY [None]
  - PITTING OEDEMA [None]
  - SEXUAL DYSFUNCTION [None]
  - WEIGHT INCREASED [None]
